FAERS Safety Report 25968911 (Version 1)
Quarter: 2025Q4

REPORT INFORMATION
  Report Type: Spontaneous
  Country: GB (occurrence: GB)
  Receive Date: 20251028
  Receipt Date: 20251028
  Transmission Date: 20260118
  Serious: Yes (Other)
  Sender: PFIZER
  Company Number: GB-MHRA-TPP9111518C19834415YC1761146661453

PATIENT
  Age: 59 Year
  Sex: Female
  Weight: 90 kg

DRUGS (9)
  1. SPIRONOLACTONE [Suspect]
     Active Substance: SPIRONOLACTONE
     Indication: Ill-defined disorder
     Dosage: 12.5 MG, 1X/DAY
     Dates: start: 20250918
  2. BECLOMETHASONE DIPROPIONATE [Concomitant]
     Active Substance: BECLOMETHASONE DIPROPIONATE
     Indication: Ill-defined disorder
     Dosage: UNK, TWO PUFFS TWICE DAILY
     Dates: start: 20250310
  3. CANDESARTAN [Concomitant]
     Active Substance: CANDESARTAN
     Indication: Ill-defined disorder
     Dosage: UNK, TAKE ONE TWICE DAILY
     Dates: start: 20250523
  4. DAPAGLIFLOZIN [Concomitant]
     Active Substance: DAPAGLIFLOZIN
     Indication: Ill-defined disorder
     Dosage: UNK, TAKE ONE DAILY
     Dates: start: 20250903
  5. IVABRADINE [Concomitant]
     Active Substance: IVABRADINE
     Indication: Ill-defined disorder
     Dosage: UNK, TAKE ONE TWICE DAILY- TO COMMENCE 2 WEEKS AFTER...
     Dates: start: 20250523
  6. LORATADINE [Concomitant]
     Active Substance: LORATADINE
     Indication: Ill-defined disorder
     Dosage: UNK, TAKE ONE DAILY
     Dates: start: 20250523
  7. ALBUTEROL [Concomitant]
     Active Substance: ALBUTEROL
     Indication: Ill-defined disorder
     Dosage: UNK, INHALE 2 DOSES TO BE TAKEN FOUR TIMES DAILY AS..
     Dates: start: 20250523
  8. SERTRALINE [Concomitant]
     Active Substance: SERTRALINE HYDROCHLORIDE
     Indication: Ill-defined disorder
     Dosage: UNK UNK, 1X/DAY
     Dates: start: 20250113
  9. FLUTICASONE PROPIONATE\SALMETEROL XINAFOATE [Concomitant]
     Active Substance: FLUTICASONE PROPIONATE\SALMETEROL XINAFOATE
     Indication: Ill-defined disorder
     Dosage: UNK, INHALE TWO DOSES TWICE DAILY
     Dates: start: 20250310

REACTIONS (3)
  - Pruritus [Recovered/Resolved]
  - Feeling hot [Recovered/Resolved]
  - Off label use [Unknown]

NARRATIVE: CASE EVENT DATE: 20250918
